FAERS Safety Report 17546285 (Version 2)
Quarter: 2020Q1

REPORT INFORMATION
  Report Type: Report from Study
  Country: DE (occurrence: DE)
  Receive Date: 20200316
  Receipt Date: 20200330
  Transmission Date: 20200409
  Serious: Yes (Other)
  Sender: FDA-Public Use
  Company Number: PHHY2014DE070919

PATIENT
  Age: 52 Year
  Sex: Male

DRUGS (4)
  1. CLOPIDOGREL [Concomitant]
     Active Substance: CLOPIDOGREL BISULFATE
     Indication: CORONARY ARTERY DISEASE
     Dosage: UNK
     Route: 065
     Dates: start: 20180908
  2. GILENYA [Suspect]
     Active Substance: FINGOLIMOD HYDROCHLORIDE
     Dosage: UNK, QD
     Route: 048
     Dates: start: 20140201, end: 20170704
  3. GILENYA [Suspect]
     Active Substance: FINGOLIMOD HYDROCHLORIDE
     Indication: MULTIPLE SCLEROSIS
     Dosage: UNK, QD
     Route: 048
     Dates: start: 20130422, end: 20140130
  4. XARELTO [Concomitant]
     Active Substance: RIVAROXABAN
     Indication: CORONARY ARTERY DISEASE
     Dosage: UNK
     Route: 065
     Dates: start: 20180908

REACTIONS (13)
  - Bradycardia [Recovered/Resolved]
  - Lymphocyte count increased [Unknown]
  - Migraine [Recovered/Resolved]
  - Atrial fibrillation [Unknown]
  - Migraine [Recovered/Resolved]
  - Coronary artery disease [Unknown]
  - Alanine aminotransferase increased [Unknown]
  - Back pain [Unknown]
  - Gamma-glutamyltransferase increased [Unknown]
  - Hot flush [Recovered/Resolved]
  - Cardiac disorder [Unknown]
  - Aspartate aminotransferase increased [Unknown]
  - Diarrhoea [Recovered/Resolved]

NARRATIVE: CASE EVENT DATE: 20140101
